FAERS Safety Report 10192880 (Version 2)
Quarter: 2014Q2

REPORT INFORMATION
  Report Type: Spontaneous
  Country: CH (occurrence: CH)
  Receive Date: 20140523
  Receipt Date: 20140526
  Transmission Date: 20141212
  Serious: Yes (Death)
  Sender: FDA-Public Use
  Company Number: CH-ASTRAZENECA-2014SE35639

PATIENT
  Age: 79 Year
  Sex: Female

DRUGS (11)
  1. BRILIQUE [Suspect]
     Indication: ACUTE MYOCARDIAL INFARCTION
     Route: 048
     Dates: start: 201312, end: 20140210
  2. CO-AMOXI [Suspect]
     Indication: PNEUMONIA BACTERIAL
     Route: 065
     Dates: start: 20131228, end: 20140106
  3. PANTOZOL [Suspect]
     Route: 065
  4. ATORVASTATIN [Suspect]
     Indication: DYSLIPIDAEMIA
     Route: 048
     Dates: end: 20140205
  5. ALDACTONE [Suspect]
     Indication: CORONARY ARTERY DISEASE
     Route: 065
     Dates: end: 20140205
  6. TOREM [Concomitant]
     Route: 048
     Dates: end: 20140205
  7. ASPIRIN CARDIO [Concomitant]
  8. DIOVAN [Concomitant]
     Route: 048
     Dates: end: 20140205
  9. DILATREND [Concomitant]
     Route: 048
  10. ELTROXIN [Concomitant]
  11. CALCIMAGON D3 [Concomitant]
     Dates: end: 20140205

REACTIONS (7)
  - Hepatic steatosis [Fatal]
  - Drug-induced liver injury [Fatal]
  - Cholestasis [Fatal]
  - Jaundice cholestatic [Fatal]
  - Blood bilirubin increased [Fatal]
  - Blood alkaline phosphatase increased [Fatal]
  - Transaminases increased [Fatal]
